FAERS Safety Report 23187492 (Version 1)
Quarter: 2023Q4

REPORT INFORMATION
  Report Type: Spontaneous
  Country: US (occurrence: US)
  Receive Date: 20231115
  Receipt Date: 20231115
  Transmission Date: 20240109
  Serious: Yes (Hospitalization, Other)
  Sender: FDA-Public Use
  Company Number: US-BIOVITRUM-2023-US-018038

PATIENT
  Age: 3 Week
  Sex: Female

DRUGS (1)
  1. SYNAGIS [Suspect]
     Active Substance: PALIVIZUMAB
     Indication: Premature baby
     Dosage: 70.9500MG EVERY 28DAYS -30DAYS
     Route: 030
     Dates: start: 20230918, end: 20231109

REACTIONS (2)
  - Bronchiolitis [Unknown]
  - COVID-19 [Unknown]
